FAERS Safety Report 5564253-9 (Version None)
Quarter: 2007Q4

REPORT INFORMATION
  Report Type: 
  Country: None (occurrence: None)
  Receive Date: 20071212
  Receipt Date: 20071127
  Transmission Date: 20080405
  Serious: Yes (Hospitalization)
  Sender: FDA-Public Use
  Company Number: 164709ISR

PATIENT
  Age: 61 Year
  Sex: Male

DRUGS (3)
  1. DICLOFENAC [Suspect]
     Indication: PAIN
     Dosage: 50 MG (50 MG, 1 IN 1 D)
     Dates: start: 20070111, end: 20071015
  2. ENALAPRIL [Suspect]
     Dosage: 10 MG (10 MG, 1 IN 1 D)
     Dates: start: 20041125, end: 20071031
  3. METOPROLOL TARTRATE [Concomitant]

REACTIONS (2)
  - DRUG INTERACTION [None]
  - RENAL FAILURE [None]
